FAERS Safety Report 8066214-7 (Version None)
Quarter: 2012Q1

REPORT INFORMATION
  Report Type: 
  Country: None (occurrence: None)
  Receive Date: 20120124
  Receipt Date: 20120119
  Transmission Date: 20120608
  Serious: Yes (Hospitalization, Other)
  Sender: FDA-Public Use
  Company Number: US-BAYER-2011-042889

PATIENT
  Age: 23 Year
  Sex: Female

DRUGS (1)
  1. MIRENA [Suspect]
     Indication: CONTRACEPTION
     Dosage: 20 MCG/24HR, CONT
     Route: 015
     Dates: start: 20110202, end: 20110511

REACTIONS (6)
  - BACK PAIN [None]
  - ABDOMINAL PAIN UPPER [None]
  - OVARIAN CYST [None]
  - PAIN [None]
  - VAGINAL HAEMORRHAGE [None]
  - GENITAL HAEMORRHAGE [None]
